FAERS Safety Report 5653257-3 (Version None)
Quarter: 2008Q1

REPORT INFORMATION
  Report Type: 
  Country: None (occurrence: None)
  Receive Date: 20080131
  Receipt Date: 20071112
  Transmission Date: 20080703
  Serious: No
  Sender: FDA-Public Use
  Company Number: US200710004492

PATIENT
  Age: 72 Year
  Sex: Male
  Weight: 95.5 kg

DRUGS (8)
  1. BYETTA [Suspect]
     Indication: TYPE 2 DIABETES MELLITUS
     Dosage: 5 UG, 2/D, SUBCUTANEOUS ; 10 UG, 2/D, SUBCUTANEOUS
     Route: 058
     Dates: start: 20070125, end: 20071018
  2. BYETTA [Suspect]
     Indication: TYPE 2 DIABETES MELLITUS
     Dosage: 5 UG, 2/D, SUBCUTANEOUS ; 10 UG, 2/D, SUBCUTANEOUS
     Route: 058
     Dates: start: 20060601
  3. GLYBURIDE [Concomitant]
  4. ATENOLOL [Concomitant]
  5. METFORMIN HCL [Concomitant]
  6. LOVASTATIN [Concomitant]
  7. BENAZEPRIL HCL [Concomitant]
  8. DOXAZOSIN (DOXAZOSIN) [Concomitant]

REACTIONS (3)
  - ABDOMINAL PAIN [None]
  - FLATULENCE [None]
  - HERPES ZOSTER [None]
